FAERS Safety Report 10506534 (Version 4)
Quarter: 2015Q2

REPORT INFORMATION
  Report Type: Report from Study
  Country: FR (occurrence: FR)
  Receive Date: 20141009
  Receipt Date: 20150622
  Transmission Date: 20150821
  Serious: Yes (Hospitalization)
  Sender: FDA-Public Use
  Company Number: FR-ROCHE-1471538

PATIENT
  Age: 64 Year
  Sex: Male
  Weight: 73 kg

DRUGS (17)
  1. RITUXIMAB [Suspect]
     Active Substance: RITUXIMAB
     Dosage: 8 CYCLES
     Route: 041
     Dates: start: 20120710, end: 20130827
  2. ARA-C [Concomitant]
     Active Substance: CYTARABINE
  3. MELPHALAN [Concomitant]
     Active Substance: MELPHALAN
  4. CORDARONE [Concomitant]
     Active Substance: AMIODARONE HYDROCHLORIDE
     Dosage: 1/5DAYS/WEEK
     Route: 048
  5. ETOPOSIDE. [Concomitant]
     Active Substance: ETOPOSIDE
     Indication: LYMPHOMA
     Route: 048
     Dates: start: 20140620, end: 20140802
  6. ETOPOSIDE. [Concomitant]
     Active Substance: ETOPOSIDE
     Route: 042
     Dates: start: 20140423, end: 20140423
  7. CARMUSTINE [Concomitant]
     Active Substance: CARMUSTINE
  8. HYDROCORTISONE. [Concomitant]
     Active Substance: HYDROCORTISONE
     Route: 048
  9. CYCLOPHOSPHAMIDE. [Concomitant]
     Active Substance: CYCLOPHOSPHAMIDE
     Indication: LYMPHOMA
     Dosage: 1 CYCLE
     Route: 042
     Dates: start: 20140423, end: 20140423
  10. CISPLATIN. [Concomitant]
     Active Substance: CISPLATIN
  11. DEXAMETHASONE. [Concomitant]
     Active Substance: DEXAMETHASONE
  12. KARDEGIC [Concomitant]
     Active Substance: ASPIRIN LYSINE
     Route: 048
  13. ZELITREX [Concomitant]
     Active Substance: VALACYCLOVIR HYDROCHLORIDE
     Route: 048
  14. DOXORUBICIN [Concomitant]
     Active Substance: DOXORUBICIN
     Indication: LYMPHOMA
     Dosage: 1 CYCLE
     Route: 042
     Dates: start: 20140423, end: 20140423
  15. DIGOXINE [Concomitant]
     Active Substance: DIGOXIN
     Dosage: 1/5DAYS/WEEK
     Route: 048
  16. RITUXIMAB [Suspect]
     Active Substance: RITUXIMAB
     Indication: MANTLE CELL LYMPHOMA
     Route: 041
     Dates: start: 20111104
  17. PREDNISONE. [Concomitant]
     Active Substance: PREDNISONE
     Indication: LYMPHOMA
     Dosage: 1 CYCLE
     Route: 042
     Dates: start: 20140423, end: 20140423

REACTIONS (1)
  - Rectal adenocarcinoma [Recovered/Resolved]

NARRATIVE: CASE EVENT DATE: 20140402
